FAERS Safety Report 5138829-7 (Version None)
Quarter: 2006Q4

REPORT INFORMATION
  Report Type: 
  Country: None (occurrence: None)
  Receive Date: 20061030
  Receipt Date: 20060425
  Transmission Date: 20070319
  Serious: No
  Sender: FDA-Public Use
  Company Number: US-GLAXOSMITHKLINE-A0603594A

PATIENT
  Age: 10 Year
  Sex: Male

DRUGS (4)
  1. ADVAIR DISKUS 100/50 [Suspect]
     Route: 055
  2. ALBUTEROL [Suspect]
  3. SINGULAIR [Suspect]
  4. CLARITIN [Suspect]

REACTIONS (3)
  - CHEST PAIN [None]
  - DRUG INEFFECTIVE [None]
  - DYSPNOEA [None]
